FAERS Safety Report 24118191 (Version 1)
Quarter: 2024Q3

REPORT INFORMATION
  Report Type: Report from Study
  Country: US (occurrence: US)
  Receive Date: 20240722
  Receipt Date: 20240722
  Transmission Date: 20241017
  Serious: Yes (Death, Hospitalization, Other)
  Sender: ABBVIE
  Company Number: US-ABBVIE-5746923

PATIENT
  Age: 88 Year
  Sex: Male

DRUGS (18)
  1. VENCLEXTA [Suspect]
     Active Substance: VENETOCLAX
     Indication: Myelodysplastic syndrome
     Dosage: TAKE 1 TABLET (100 MG) BY MOUTH DAILY. FORM STRENGTH: 100 MG
     Route: 048
  2. VENCLEXTA [Suspect]
     Active Substance: VENETOCLAX
     Indication: Myelodysplastic syndrome
     Dosage: TAKE 1 TABLET BY MOUTH DAILY. FORM STRENGTH: 100 MG
     Route: 048
     Dates: end: 20240407
  3. VENCLEXTA [Suspect]
     Active Substance: VENETOCLAX
     Indication: Myelodysplastic syndrome
     Dosage: TAKE 1 TABLET BY MOUTH (100MG) DAILY ON DAYS 1-21 OF A 42 DAY CYCLE.?FORM STRENGTH: 100 MG
     Route: 048
     Dates: start: 20221219
  4. HYDROCORTISONE [Concomitant]
     Active Substance: HYDROCORTISONE\HYDROCORTISONE ACETATE
     Indication: Product used for unknown indication
     Dosage: APPLY 1 G TOPICALLY TWO TIMES A DAY. FORM STRENGTH: 0.5 MG
     Route: 061
     Dates: start: 20210331, end: 20221219
  5. ALBUTEROL SULFATE [Concomitant]
     Active Substance: ALBUTEROL SULFATE
     Indication: Wheezing
     Dosage: MCG/ACT INHALER (DISCONTINUED) INHALE 2 PUFFS EVERY 6 HOURS AS NEEDED
     Route: 055
     Dates: start: 20180331, end: 20221219
  6. LIPITOR [Concomitant]
     Active Substance: ATORVASTATIN CALCIUM
     Indication: Product used for unknown indication
     Dosage: TAKE 1TAB (40 MG ) BY MOUTH DAILY. FORM STRENGTH: 40 MG
     Route: 048
     Dates: start: 20220309, end: 20221206
  7. LIPITOR [Concomitant]
     Active Substance: ATORVASTATIN CALCIUM
     Indication: Product used for unknown indication
     Dosage: TAKE 1 TABLET (40 MG) BY MOUTH DAILY
     Route: 048
     Dates: start: 20221206
  8. VITAMIN D3 [Concomitant]
     Active Substance: CHOLECALCIFEROL
     Indication: Product used for unknown indication
     Dosage: TAKE 2 TABLETS (2,000 UNITS) BY MOUTH DAILY. FORM STRENGTH: 1000
     Route: 048
     Dates: start: 20231011
  9. REMERON [Concomitant]
     Active Substance: MIRTAZAPINE
     Indication: Product used for unknown indication
     Dosage: TAKE 1 TABLET (30 MG) BY MOUTH DAILY AT BEDTIME. FORM STRENGTH: 30 MG
     Route: 048
     Dates: start: 20220524
  10. FLONASE [Concomitant]
     Active Substance: FLUTICASONE PROPIONATE
     Indication: Product used for unknown indication
     Dosage: 50 MCG / ACT NASAL SOLUTION PLACE 2 SPRAYS INTO BOTH NOSTRILS DAILY
     Route: 055
     Dates: start: 20170321, end: 20221219
  11. ZESTRIL [Concomitant]
     Active Substance: LISINOPRIL
     Indication: Product used for unknown indication
     Dosage: TAKE 1 TABLET BY MOUTH DAILY. FORM STRENGTH: 5 MG
     Route: 048
     Dates: start: 20221121
  12. TENORMIN [Concomitant]
     Active Substance: ATENOLOL
     Indication: Product used for unknown indication
     Dosage: TAKE 1 TABLET (25 MG) BY MOUTH DAILY. FORM STRENGTH: 25 MG
     Route: 048
     Dates: start: 20221206, end: 20221206
  13. TENORMIN [Concomitant]
     Active Substance: ATENOLOL
     Indication: Product used for unknown indication
     Dosage: TAKE 1TAB BY MOUTH DAILY
     Route: 048
     Dates: start: 20220819, end: 20221206
  14. ASPIRIN [Concomitant]
     Active Substance: ASPIRIN
     Indication: Product used for unknown indication
     Dosage: TAKE 1TAB BY MOUTH DAILY . PATIENT NOT TAKING. FORM STRENGTH: 81 MG
     Route: 048
     Dates: start: 20210924, end: 20221219
  15. KENALOG [Concomitant]
     Active Substance: TRIAMCINOLONE ACETONIDE
     Indication: Product used for unknown indication
     Dosage: APPLY TOPICALLY TWO TIMES DAILY AS NEEDED FOR OTHER (FOR RASH ON BACK ). FORM STRENGTH: 0.1 PERCENT
     Route: 061
     Dates: start: 20210413, end: 20221219
  16. ROBITUSSIN DM [Concomitant]
     Active Substance: DEXTROMETHORPHAN HYDROBROMIDE\GUAIFENESIN
     Indication: Cough
     Dosage: STRENGTH:10-100 MG/5 ML SYRUP (DISCONTINUED ), TAKE 10 ML BY MOUTH EVERY 4 HRS AS NEEDED FOR COUG...
     Dates: end: 20221219
  17. REVATIO [Concomitant]
     Active Substance: SILDENAFIL CITRATE
     Indication: Product used for unknown indication
     Dosage: TAKE 3 TABLETS BY MOUTH AS NEEDED. ED?FORM STRENGTH: 20 MILLIGRAM
     Route: 048
     Dates: start: 20190313
  18. EFUDEX [Concomitant]
     Active Substance: FLUOROURACIL
     Indication: Product used for unknown indication
     Dosage: APPLY ONCE DAILY TO FACE X 21 DAYS ONCE PER YEAR
     Route: 061
     Dates: start: 20210610, end: 20221219

REACTIONS (5)
  - Neutropenic sepsis [Fatal]
  - Acute myeloid leukaemia [Fatal]
  - Bacterial sepsis [Unknown]
  - Pneumonia bacterial [Fatal]
  - Pseudomonal bacteraemia [Fatal]

NARRATIVE: CASE EVENT DATE: 20230911
